FAERS Safety Report 4999424-3 (Version None)
Quarter: 2006Q2

REPORT INFORMATION
  Report Type: 
  Country: None (occurrence: None)
  Receive Date: 20060509
  Receipt Date: 20060509
  Transmission Date: 20061013
  Serious: No
  Sender: FDA-Public Use
  Company Number: None

PATIENT
  Age: 73 Year
  Sex: Male

DRUGS (2)
  1. MORPHINE [Suspect]
     Indication: PAIN
     Dosage: 0.05%
     Dates: start: 20050804
  2. BUPIVACAINE [Suspect]
     Dosage: 6 ML/HR, DEMAND 4ML LOCK OUT 10MIN

REACTIONS (4)
  - LOSS OF CONSCIOUSNESS [None]
  - POST PROCEDURAL COMPLICATION [None]
  - PROCEDURAL HYPOTENSION [None]
  - RESPIRATORY ARREST [None]
